FAERS Safety Report 5451272-6 (Version None)
Quarter: 2007Q3

REPORT INFORMATION
  Report Type: 
  Country: None (occurrence: None)
  Receive Date: 20070911
  Receipt Date: 20070911
  Transmission Date: 20080115
  Serious: Yes (Hospitalization, Other)
  Sender: FDA-Public Use
  Company Number: None

PATIENT
  Age: 50 Year
  Sex: Female
  Weight: 55.4 kg

DRUGS (1)
  1. MYFORTIC [Suspect]

REACTIONS (3)
  - ESCHERICHIA INFECTION [None]
  - URINARY TRACT INFECTION [None]
  - UROSEPSIS [None]
